FAERS Safety Report 6506001-1 (Version None)
Quarter: 2009Q4

REPORT INFORMATION
  Report Type: 
  Country: None (occurrence: None)
  Receive Date: 20091218
  Receipt Date: 20091218
  Transmission Date: 20100525
  Serious: Yes (Other)
  Sender: FDA-Public Use
  Company Number: US-PFIZER INC-2009294815

PATIENT
  Sex: Female
  Weight: 68.038 kg

DRUGS (1)
  1. CELEBREX [Suspect]
     Indication: ARTHRITIS
     Dosage: 200 MG, AS NEEDED
     Route: 048
     Dates: end: 20090101

REACTIONS (5)
  - PAIN [None]
  - RASH [None]
  - ROAD TRAFFIC ACCIDENT [None]
  - ROTATOR CUFF SYNDROME [None]
  - VISION BLURRED [None]
